FAERS Safety Report 6468493-6 (Version None)
Quarter: 2009Q4

REPORT INFORMATION
  Report Type: 
  Country: None (occurrence: None)
  Receive Date: 20091202
  Receipt Date: 20091202
  Transmission Date: 20100525
  Serious: Yes (Hospitalization)
  Sender: FDA-Public Use
  Company Number: None

PATIENT
  Age: 39 Year
  Sex: Female
  Weight: 22.2263 kg

DRUGS (1)
  1. FERAHEME [Suspect]
     Indication: ANAEMIA
     Dosage: 510MG 1 IVP
     Route: 042
     Dates: start: 20091125

REACTIONS (5)
  - CHEST PAIN [None]
  - ELECTROCARDIOGRAM QT PROLONGED [None]
  - MUSCULOSKELETAL PAIN [None]
  - TREMOR [None]
  - UNRESPONSIVE TO STIMULI [None]
